FAERS Safety Report 19625615 (Version 2)
Quarter: 2021Q3

REPORT INFORMATION
  Report Type: Report from Study
  Country: GB (occurrence: GB)
  Receive Date: 20210729
  Receipt Date: 20210906
  Transmission Date: 20211014
  Serious: Yes (Hospitalization, Other)
  Sender: FDA-Public Use
  Company Number: GB-BRISTOL-MYERS SQUIBB COMPANY-BMS-2021-055862

PATIENT
  Age: 77 Year
  Sex: Male
  Weight: 84.8 kg

DRUGS (9)
  1. PREDNISOLONE. [Concomitant]
     Active Substance: PREDNISOLONE
     Indication: TOXICITY TO VARIOUS AGENTS
     Dosage: 20 MILLIGRAM, BID
     Route: 048
     Dates: start: 20200903
  2. RP1 [Suspect]
     Active Substance: SERINE/THREONINE-PROTEIN KINASE 19
     Indication: MALIGNANT MELANOMA
     Dosage: 1*10E6 PFU/ML (TOTAL VOL INJECTED 10 ML)
     Route: 036
     Dates: start: 20190805
  3. OMEPRAZOLE. [Concomitant]
     Active Substance: OMEPRAZOLE
     Indication: GASTROINTESTINAL DISORDER
     Dosage: 20 MILLIGRAM, QD
     Route: 048
     Dates: start: 20201126
  4. FINASTERIDE. [Concomitant]
     Active Substance: FINASTERIDE
     Indication: MICTURITION URGENCY
     Dosage: 5 MILLIGRAM, QD
     Route: 048
     Dates: start: 20191111
  5. NIVOLUMAB [Suspect]
     Active Substance: NIVOLUMAB
     Dosage: 480 MILLIGRAM, Q4WK
     Route: 042
     Dates: start: 20210524, end: 20210524
  6. LEVOTHYROXINE. [Concomitant]
     Active Substance: LEVOTHYROXINE
     Indication: HYPERTHYROIDISM
     Dosage: 150 MILLIGRAM, QD
     Route: 048
     Dates: start: 2016
  7. NIVOLUMAB [Suspect]
     Active Substance: NIVOLUMAB
     Indication: MALIGNANT MELANOMA
     Dosage: 240 MILLIGRAM, Q2WK
     Route: 042
     Dates: start: 20190819, end: 20190819
  8. RP1 [Suspect]
     Active Substance: SERINE/THREONINE-PROTEIN KINASE 19
     Dosage: 1*10E7 PFU/ML (TOTAL VOLUME INJECTED 10 ML)
     Route: 036
     Dates: start: 20191111
  9. DALTEPARIN [Concomitant]
     Active Substance: DALTEPARIN
     Indication: PULMONARY EMBOLISM
     Dosage: 10000 UNIT, QD
     Route: 048
     Dates: start: 20200124

REACTIONS (2)
  - Pain in extremity [Recovered/Resolved with Sequelae]
  - Infected skin ulcer [Recovered/Resolved with Sequelae]

NARRATIVE: CASE EVENT DATE: 20210527
